FAERS Safety Report 17565754 (Version 2)
Quarter: 2022Q4

REPORT INFORMATION
  Report Type: Spontaneous
  Country: DK (occurrence: DK)
  Receive Date: 20200320
  Receipt Date: 20221011
  Transmission Date: 20230112
  Serious: Yes (Hospitalization)
  Sender: FDA-Public Use
  Company Number: None

PATIENT
  Age: 44 Year
  Sex: Female
  Weight: 298 kg

DRUGS (18)
  1. ARIPIPRAZOLE [Suspect]
     Active Substance: ARIPIPRAZOLE
     Indication: Schizophrenia
     Dosage: STYRKE: 10 MG, 15 MG. DOSIS: OP TIL 30 MG I D?GNET
     Route: 048
     Dates: start: 2009
  2. ARIPIPRAZOLE [Suspect]
     Active Substance: ARIPIPRAZOLE
     Dosage: STRENGTH: 20 MG +10 MG AND 15 MG
     Route: 048
     Dates: start: 2009
  3. PALIPERIDONE [Suspect]
     Active Substance: PALIPERIDONE
     Indication: Schizophrenia
     Dosage: STRENGTH: 3 MG  DOSIS: AKTUELT 3 MG DAGLIGT
     Route: 048
     Dates: start: 20220203
  4. POTASSIUM CHLORIDE [Concomitant]
     Active Substance: POTASSIUM CHLORIDE
     Indication: Mineral supplementation
     Dosage: STYRKE: 750 MG
     Route: 048
     Dates: start: 202001
  5. FLUTICASONE PROPIONATE [Concomitant]
     Active Substance: FLUTICASONE PROPIONATE
     Indication: Asthma
     Dosage: STYRKE: 250 ?G/DOSIS
     Route: 055
     Dates: start: 202001
  6. LASIX [Concomitant]
     Active Substance: FUROSEMIDE
     Indication: Diuretic therapy
     Dosage: STYRKE: 60 MG
     Route: 048
     Dates: start: 202001
  7. LEVOTHYROXINE [Concomitant]
     Active Substance: LEVOTHYROXINE
     Indication: Hypothyroidism
     Dosage: STYRKE: 50 ?G
     Route: 048
     Dates: start: 202001
  8. PANTOPRAZOLE [Concomitant]
     Active Substance: PANTOPRAZOLE
     Indication: Gastrooesophageal reflux disease
     Dosage: STYRKE: 20 MG
     Route: 048
     Dates: start: 202001
  9. ALBUTEROL [Concomitant]
     Active Substance: ALBUTEROL
     Indication: Bronchospasm
     Dosage: STYRKE: 1 MG/ML
     Route: 065
     Dates: start: 202001
  10. NICORETTE CLASSIC                  /01033301/ [Concomitant]
     Indication: Smoking cessation therapy
     Dosage: STYRKE: 4 MG, DOSIS: 1 TYGGEGUMMI EFTER BEHOV
     Route: 048
     Dates: start: 2019
  11. AIROMIR                            /00139501/ [Concomitant]
     Indication: Asthma
     Dosage: STYRKE: 0.1 MG/DOSIS, DOSIS: 4 PUST EFTER BEHOV
     Route: 055
     Dates: start: 202001
  12. ACETAMINOPHEN [Concomitant]
     Active Substance: ACETAMINOPHEN
     Indication: Pain
     Dosage: STYRKE: 500 MG
     Route: 048
     Dates: start: 202001
  13. LACTULOSE [Concomitant]
     Active Substance: LACTULOSE
     Indication: Constipation
     Dosage: STYRKE: 600 MG/ML, DOSIS: 15 ML EFTER BEHOV H?JST
     Route: 048
     Dates: start: 202001
  14. OLODATEROL HYDROCHLORIDE\TIOTROPIUM BROMIDE MONOHYDRATE [Concomitant]
     Active Substance: OLODATEROL HYDROCHLORIDE\TIOTROPIUM BROMIDE MONOHYDRATE
     Indication: Asthma
     Dosage: STYRKE: 2.5+2.5 ?G
     Route: 055
     Dates: start: 202001
  15. VENTOLINE                          /00139501/ [Concomitant]
     Indication: Asthma
     Dosage: STYRKE: 0.2 MG/DISKOS
     Route: 055
     Dates: start: 202002
  16. CITALOPRAM [Concomitant]
     Active Substance: CITALOPRAM HYDROBROMIDE
     Indication: Schizophrenia
     Dosage: 40 MILLIGRAM, QD
     Route: 048
     Dates: start: 2010
  17. ORPHENADRINE HYDROCHLORIDE [Concomitant]
     Active Substance: ORPHENADRINE HYDROCHLORIDE
     Indication: Schizophrenia
     Dosage: 150 MILLIGRAM, QD
     Route: 048
     Dates: start: 2010
  18. RIVOTRIL [Concomitant]
     Active Substance: CLONAZEPAM
     Indication: Schizophrenia
     Dosage: 5 MILLIGRAM, DOSAGE: MAKSIMAL TWICE DAILY,
     Route: 065

REACTIONS (3)
  - Dyspnoea [Unknown]
  - Pickwickian syndrome [Unknown]
  - Weight increased [Unknown]
